FAERS Safety Report 20000707 (Version 1)
Quarter: 2021Q4

REPORT INFORMATION
  Report Type: Spontaneous
  Country: US (occurrence: US)
  Receive Date: 20211026
  Receipt Date: 20211026
  Transmission Date: 20220303
  Serious: Yes (Life-Threatening)
  Sender: FDA-Public Use
  Company Number: None

PATIENT
  Age: 81 Year
  Sex: Male
  Weight: 63.7 kg

DRUGS (1)
  1. HEPARIN SODIUM [Suspect]
     Active Substance: HEPARIN SODIUM
     Indication: Anticoagulant therapy
     Dosage: ?          OTHER FREQUENCY:ONCE;
     Route: 040
     Dates: start: 20210707, end: 20210707

REACTIONS (1)
  - Thrombosis [None]

NARRATIVE: CASE EVENT DATE: 20210707
